FAERS Safety Report 23700364 (Version 3)
Quarter: 2025Q1

REPORT INFORMATION
  Report Type: Other
  Country: DE (occurrence: DE)
  Receive Date: 20240403
  Receipt Date: 20250131
  Transmission Date: 20250409
  Serious: Yes (Life-Threatening, Hospitalization, Other)
  Sender: BIOCON
  Company Number: DE-EMA-DD-20240325-7482677-050106

PATIENT

DRUGS (6)
  1. TRASTUZUMAB [Suspect]
     Active Substance: TRASTUZUMAB
     Indication: Breast cancer metastatic
     Dosage: 6 MG/KG, Q3W
     Route: 042
     Dates: start: 20230620, end: 20240130
  2. TUKYSA [Suspect]
     Active Substance: TUCATINIB
     Indication: Breast cancer metastatic
     Dosage: 600 MG, QD (300 MG, 2X/DAY)
     Route: 048
     Dates: start: 20231106
  3. CAPECITABINE [Suspect]
     Active Substance: CAPECITABINE
     Indication: Breast cancer
     Dosage: 1650 MG, 2X/DAY
     Route: 065
     Dates: start: 20231106, end: 20240202
  4. LEVETIRACETAM [Suspect]
     Active Substance: LEVETIRACETAM
     Indication: Metastases to central nervous system
     Dosage: 1000 MG, 2X/DAY
     Route: 065
     Dates: start: 202110
  5. GRANISETRONE [Concomitant]
     Indication: Nausea
     Dosage: 3.1 MG / 24HRS, EVERY 5 DAYS, DURING CAPECITABINE INTAKE
     Route: 062
     Dates: start: 202311
  6. PANTOPRAZOLE [Concomitant]
     Active Substance: PANTOPRAZOLE
     Indication: Product used for unknown indication
     Dosage: 20 MG, QD (1X/DAY)
     Route: 065

REACTIONS (5)
  - Ventricular fibrillation [Recovered/Resolved]
  - Cardiac arrest [Recovered/Resolved]
  - Circulatory collapse [Recovered/Resolved]
  - Psychological trauma [Not Recovered/Not Resolved]
  - Ejection fraction decreased [Not Recovered/Not Resolved]

NARRATIVE: CASE EVENT DATE: 20240202
